FAERS Safety Report 5061148-4 (Version None)
Quarter: 2006Q3

REPORT INFORMATION
  Report Type: 
  Country: None (occurrence: None)
  Receive Date: 20060720
  Receipt Date: 20060720
  Transmission Date: 20061208
  Serious: Yes (Hospitalization)
  Sender: FDA-Public Use
  Company Number: None

PATIENT
  Age: 42 Year
  Sex: Male
  Weight: 42.6381 kg

DRUGS (29)
  1. DOCETAXEL [Suspect]
     Indication: LIP AND/OR ORAL CAVITY CANCER
     Dosage: 45 MG  Q WEEK X 3 WEEKS  IV
     Route: 042
     Dates: start: 20051230
  2. DOCETAXEL [Suspect]
     Indication: LIP AND/OR ORAL CAVITY CANCER
     Dosage: 45 MG  Q WEEK X 3 WEEKS  IV
     Route: 042
     Dates: start: 20060106
  3. DOCETAXEL [Suspect]
     Indication: LIP AND/OR ORAL CAVITY CANCER
     Dosage: 45 MG  Q WEEK X 3 WEEKS  IV
     Route: 042
     Dates: start: 20060127
  4. DOCETAXEL [Suspect]
     Indication: LIP AND/OR ORAL CAVITY CANCER
     Dosage: 45 MG  Q WEEK X 3 WEEKS  IV
     Route: 042
     Dates: start: 20060203
  5. DOCETAXEL [Suspect]
     Indication: LIP AND/OR ORAL CAVITY CANCER
     Dosage: 45 MG  Q WEEK X 3 WEEKS  IV
     Route: 042
     Dates: start: 20060303
  6. DOCETAXEL [Suspect]
     Indication: LIP AND/OR ORAL CAVITY CANCER
     Dosage: 45 MG  Q WEEK X 3 WEEKS  IV
     Route: 042
     Dates: start: 20060310
  7. DOCETAXEL [Suspect]
     Indication: LIP AND/OR ORAL CAVITY CANCER
     Dosage: 45 MG  Q WEEK X 3 WEEKS  IV
     Route: 042
     Dates: start: 20060318
  8. CARBOPLATIN [Suspect]
     Indication: LIP AND/OR ORAL CAVITY CANCER
     Dosage: 900 MG  QWEEK X 3 WEEKS  IV
     Route: 042
     Dates: start: 20051230
  9. CARBOPLATIN [Suspect]
     Indication: LIP AND/OR ORAL CAVITY CANCER
     Dosage: 900 MG  QWEEK X 3 WEEKS  IV
     Route: 042
     Dates: start: 20060106
  10. CARBOPLATIN [Suspect]
     Indication: LIP AND/OR ORAL CAVITY CANCER
     Dosage: 900 MG  QWEEK X 3 WEEKS  IV
     Route: 042
     Dates: start: 20060127
  11. CARBOPLATIN [Suspect]
     Indication: LIP AND/OR ORAL CAVITY CANCER
     Dosage: 900 MG  QWEEK X 3 WEEKS  IV
     Route: 042
     Dates: start: 20060203
  12. CARBOPLATIN [Suspect]
     Indication: LIP AND/OR ORAL CAVITY CANCER
     Dosage: 900 MG  QWEEK X 3 WEEKS  IV
     Route: 042
     Dates: start: 20060303
  13. CARBOPLATIN [Suspect]
     Indication: LIP AND/OR ORAL CAVITY CANCER
     Dosage: 900 MG  QWEEK X 3 WEEKS  IV
     Route: 042
     Dates: start: 20060310
  14. CARBOPLATIN [Suspect]
     Indication: LIP AND/OR ORAL CAVITY CANCER
     Dosage: 900 MG  QWEEK X 3 WEEKS  IV
     Route: 042
     Dates: start: 20060318
  15. IFOSFAMIDE [Suspect]
     Indication: LIP AND/OR ORAL CAVITY CANCER
     Dosage: 750MG   QWEEK X 3 WEEKS  IV
     Route: 042
     Dates: start: 20051230
  16. IFOSFAMIDE [Suspect]
     Indication: LIP AND/OR ORAL CAVITY CANCER
     Dosage: 750MG   QWEEK X 3 WEEKS  IV
     Route: 042
     Dates: start: 20060106
  17. IFOSFAMIDE [Suspect]
     Indication: LIP AND/OR ORAL CAVITY CANCER
     Dosage: 750MG   QWEEK X 3 WEEKS  IV
     Route: 042
     Dates: start: 20060127
  18. IFOSFAMIDE [Suspect]
     Indication: LIP AND/OR ORAL CAVITY CANCER
     Dosage: 750MG   QWEEK X 3 WEEKS  IV
     Route: 042
     Dates: start: 20060203
  19. IFOSFAMIDE [Suspect]
     Indication: LIP AND/OR ORAL CAVITY CANCER
     Dosage: 750MG   QWEEK X 3 WEEKS  IV
     Route: 042
     Dates: start: 20060303
  20. IFOSFAMIDE [Suspect]
     Indication: LIP AND/OR ORAL CAVITY CANCER
     Dosage: 750MG   QWEEK X 3 WEEKS  IV
     Route: 042
     Dates: start: 20060310
  21. IFOSFAMIDE [Suspect]
     Indication: LIP AND/OR ORAL CAVITY CANCER
     Dosage: 750MG   QWEEK X 3 WEEKS  IV
     Route: 042
     Dates: start: 20060318
  22. ERBITUX [Suspect]
     Indication: LIP AND/OR ORAL CAVITY CANCER
     Dosage: 375 MG   Q WEEK   IV
     Route: 042
     Dates: start: 20060410
  23. ERBITUX [Suspect]
     Indication: LIP AND/OR ORAL CAVITY CANCER
     Dosage: 375 MG   Q WEEK   IV
     Route: 042
     Dates: start: 20060417
  24. ERBITUX [Suspect]
     Indication: LIP AND/OR ORAL CAVITY CANCER
     Dosage: 375 MG   Q WEEK   IV
     Route: 042
     Dates: start: 20060424
  25. ERBITUX [Suspect]
     Indication: LIP AND/OR ORAL CAVITY CANCER
     Dosage: 375 MG   Q WEEK   IV
     Route: 042
     Dates: start: 20060501
  26. CARBOPLATIN [Suspect]
     Indication: LIP AND/OR ORAL CAVITY CANCER
     Dosage: 150MG   Q WEEK   IV
     Route: 042
     Dates: start: 20060410
  27. CARBOPLATIN [Suspect]
     Indication: LIP AND/OR ORAL CAVITY CANCER
     Dosage: 150MG   Q WEEK   IV
     Route: 042
     Dates: start: 20060417
  28. CARBOPLATIN [Suspect]
     Indication: LIP AND/OR ORAL CAVITY CANCER
     Dosage: 150MG   Q WEEK   IV
     Route: 042
     Dates: start: 20060424
  29. CARBOPLATIN [Suspect]
     Indication: LIP AND/OR ORAL CAVITY CANCER
     Dosage: 150MG   Q WEEK   IV
     Route: 042
     Dates: start: 20060501

REACTIONS (4)
  - ANAEMIA [None]
  - HYPOTENSION [None]
  - LUNG INFILTRATION [None]
  - PYREXIA [None]
